FAERS Safety Report 4475949-4 (Version None)
Quarter: 2004Q4

REPORT INFORMATION
  Report Type: 
  Country: None (occurrence: None)
  Receive Date: 20041012
  Receipt Date: 20040930
  Transmission Date: 20050328
  Serious: Yes (Other)
  Sender: FDA-Public Use
  Company Number: 10062995-C621789-1

PATIENT
  Sex: Female

DRUGS (2)
  1. PLASMA-LYTE A IN PLASTIC CONTAINER [Suspect]
     Indication: NORMAL DELIVERY
     Dosage: IV
     Route: 042
     Dates: start: 20040930, end: 20040930
  2. PLASMA-LYTE A IN PLASTIC CONTAINER [Suspect]
     Indication: NORMAL LABOUR
     Dosage: IV
     Route: 042
     Dates: start: 20040930, end: 20040930

REACTIONS (3)
  - CHEST PAIN [None]
  - HEART RATE INCREASED [None]
  - RESPIRATORY RATE INCREASED [None]
